FAERS Safety Report 21238020 (Version 1)
Quarter: 2022Q3

REPORT INFORMATION
  Report Type: Spontaneous
  Country: US (occurrence: None)
  Receive Date: 20220822
  Receipt Date: 20220822
  Transmission Date: 20221027
  Serious: No
  Sender: FDA-Public Use
  Company Number: 2022A286226

PATIENT

DRUGS (2)
  1. SYMBICORT [Suspect]
     Active Substance: BUDESONIDE\FORMOTEROL FUMARATE DIHYDRATE
     Indication: Asthma
     Dosage: UNKNOWN
     Route: 055
  2. SYMBICORT [Suspect]
     Active Substance: BUDESONIDE\FORMOTEROL FUMARATE DIHYDRATE
     Indication: Bronchitis
     Dosage: UNKNOWN
     Route: 055

REACTIONS (6)
  - Bronchitis [Unknown]
  - Asthma [Unknown]
  - Wrong technique in device usage process [Unknown]
  - Product use issue [Unknown]
  - Inability to afford medication [Unknown]
  - Device use issue [Unknown]
